FAERS Safety Report 10594200 (Version 2)
Quarter: 2015Q1

REPORT INFORMATION
  Report Type: Report from Study
  Country: FI (occurrence: FI)
  Receive Date: 20141119
  Receipt Date: 20150206
  Transmission Date: 20150720
  Serious: Yes (Other)
  Sender: FDA-Public Use
  Company Number: FI-RECKITT BENCKISER PHARMACEUTICAL, INC-RB-73072-2014

PATIENT
  Age: 35 Year
  Sex: Male

DRUGS (3)
  1. SUBOXONE [Suspect]
     Active Substance: BUPRENORPHINE HYDROCHLORIDE\NALOXONE HYDROCHLORIDE
     Dosage: LESS THAN ONCE A WEEK, TAKING FROM PAST 15 YEARS
     Route: 045
  2. SUBUTEX [Suspect]
     Active Substance: BUPRENORPHINE HYDROCHLORIDE
     Indication: DRUG DEPENDENCE
     Dosage: CURRENTLY USING EVERY DAY, TAKING FROM PAST 15 YEARS
     Route: 051
  3. SUBOXONE [Suspect]
     Active Substance: BUPRENORPHINE HYDROCHLORIDE\NALOXONE HYDROCHLORIDE
     Indication: DRUG DEPENDENCE
     Dosage: LESS THAN ONCE A WEEK, TAKING FROM PAST 15 YEARS
     Route: 051

REACTIONS (4)
  - Hepatitis C [Unknown]
  - Intentional product misuse [Not Recovered/Not Resolved]
  - Drug dependence [Not Recovered/Not Resolved]
  - Substance abuse [Not Recovered/Not Resolved]
